FAERS Safety Report 6681514-0 (Version None)
Quarter: 2010Q2

REPORT INFORMATION
  Report Type: 
  Country: None (occurrence: None)
  Receive Date: 20100414
  Receipt Date: 20100401
  Transmission Date: 20101027
  Serious: Yes (Hospitalization, Other)
  Sender: FDA-Public Use
  Company Number: PHHY2010FI02489

PATIENT
  Age: 36 Year
  Sex: Female

DRUGS (5)
  1. LEPONEX [Suspect]
     Indication: SCHIZOPHRENIA
     Dosage: 12.5 MG, BID
     Route: 065
     Dates: start: 20090716
  2. LEPONEX [Suspect]
     Dosage: 150 MG/DAY
     Dates: start: 20090730, end: 20090802
  3. MOVICOL [Concomitant]
     Dosage: ONE TO TWO TIMES A DAY
  4. SERDOLECT [Concomitant]
     Dosage: 20 MG, QD
  5. OPAMOX [Concomitant]
     Dosage: 15 MG ONE TO THREE TIMES A DAY

REACTIONS (13)
  - ARRHYTHMIA [None]
  - BACTERIAL INFECTION [None]
  - C-REACTIVE PROTEIN INCREASED [None]
  - CARDIAC FAILURE [None]
  - CONDITION AGGRAVATED [None]
  - DIARRHOEA [None]
  - EOSINOPHIL COUNT INCREASED [None]
  - FATIGUE [None]
  - GASTROENTERITIS [None]
  - HEART RATE INCREASED [None]
  - NEUTROPHIL COUNT INCREASED [None]
  - PYREXIA [None]
  - SINUSITIS [None]
